FAERS Safety Report 19951729 (Version 4)
Quarter: 2021Q4

REPORT INFORMATION
  Report Type: Spontaneous
  Country: AU (occurrence: AU)
  Receive Date: 20211014
  Receipt Date: 20211028
  Transmission Date: 20220303
  Serious: Yes (Death, Other)
  Sender: FDA-Public Use
  Company Number: AU-BAUSCH-BL-2021-034102

PATIENT
  Age: 23 Year
  Sex: Male

DRUGS (19)
  1. DIAZEPAM [Suspect]
     Active Substance: DIAZEPAM
     Indication: Agitation
     Route: 042
  2. DIAZEPAM [Suspect]
     Active Substance: DIAZEPAM
     Route: 065
  3. EPINEPHRINE [Suspect]
     Active Substance: EPINEPHRINE
     Indication: Symptomatic treatment
     Route: 042
  4. EPINEPHRINE [Suspect]
     Active Substance: EPINEPHRINE
     Indication: Toxicity to various agents
  5. CALCIUM GLUCONATE [Suspect]
     Active Substance: CALCIUM GLUCONATE
     Indication: Toxicity to various agents
     Route: 042
  6. CALCIUM GLUCONATE [Suspect]
     Active Substance: CALCIUM GLUCONATE
     Indication: Symptomatic treatment
  7. INSULIN GLARGINE [Suspect]
     Active Substance: INSULIN GLARGINE
     Indication: Symptomatic treatment
     Route: 042
  8. INSULIN GLARGINE [Suspect]
     Active Substance: INSULIN GLARGINE
     Indication: Toxicity to various agents
  9. SODIUM BICARBONATE [Suspect]
     Active Substance: SODIUM BICARBONATE
     Indication: Toxicity to various agents
     Route: 065
  10. CHARCOAL [Suspect]
     Active Substance: ACTIVATED CHARCOAL
     Indication: Toxicity to various agents
     Route: 065
  11. SODIUM [Suspect]
     Active Substance: SODIUM
     Indication: Toxicity to various agents
     Route: 065
  12. DEXTROSE [Suspect]
     Active Substance: DEXTROSE
     Indication: Toxicity to various agents
     Route: 042
  13. DEXTROSE [Suspect]
     Active Substance: DEXTROSE
     Indication: Symptomatic treatment
  14. TADALAFIL [Suspect]
     Active Substance: TADALAFIL
     Indication: Muscle building therapy
     Route: 065
  15. SODIUM CHLORIDE [Suspect]
     Active Substance: SODIUM CHLORIDE
     Indication: Toxicity to various agents
     Route: 042
  16. SODIUM CHLORIDE [Suspect]
     Active Substance: SODIUM CHLORIDE
     Indication: Symptomatic treatment
  17. MIDAZOLAM [Concomitant]
     Active Substance: MIDAZOLAM
     Indication: Endotracheal intubation
  18. ROCURONIUM [Concomitant]
     Active Substance: ROCURONIUM BROMIDE
     Indication: Endotracheal intubation
  19. PROPOFOL [Concomitant]
     Active Substance: PROPOFOL
     Indication: Endotracheal intubation

REACTIONS (2)
  - Drug ineffective [Fatal]
  - Drug abuse [Unknown]
